FAERS Safety Report 9507632 (Version 1)
Quarter: 2013Q3

REPORT INFORMATION
  Report Type: Spontaneous
  Country: FI (occurrence: FI)
  Receive Date: 20130909
  Receipt Date: 20130909
  Transmission Date: 20140515
  Serious: Yes (Disabling)
  Sender: FDA-Public Use
  Company Number: FI-SANOFI-AVENTIS-2013SA087782

PATIENT
  Age: 72 Year
  Sex: Male

DRUGS (6)
  1. PLAVIX [Suspect]
     Indication: PROPHYLAXIS
     Dosage: FREQUENCY APPARANTLY DAILY
     Route: 048
     Dates: start: 20130428, end: 20130731
  2. FURESIS [Concomitant]
     Dosage: STRENGTH: 20 MG
     Route: 048
  3. CARDACE [Concomitant]
     Dosage: STRENGTH: 5 MG
     Route: 048
  4. BISOPROLOL ACTAVIS [Concomitant]
     Dosage: STRENGTH:5 MG
     Route: 048
  5. LIPCUT [Concomitant]
     Dosage: STRENGTH: 40 MG
     Route: 048
  6. GLUCOPHAGE [Concomitant]
     Dosage: STRENGTH: 1000 MG
     Route: 048

REACTIONS (2)
  - Anosmia [Not Recovered/Not Resolved]
  - Ageusia [Not Recovered/Not Resolved]
